FAERS Safety Report 16828710 (Version 2)
Quarter: 2019Q4

REPORT INFORMATION
  Report Type: Spontaneous
  Country: FR (occurrence: FR)
  Receive Date: 20190919
  Receipt Date: 20191119
  Transmission Date: 20200122
  Serious: Yes (Congenital Anomaly, Other)
  Sender: FDA-Public Use
  Company Number: FR-MYLANLABS-2019M1086888

PATIENT
  Age: 17 Year
  Sex: Male

DRUGS (4)
  1. DEPAKINE CHRONO [Suspect]
     Active Substance: VALPROATE SODIUM
     Indication: EPILEPSY
     Dosage: 2000 MILLIGRAM, QD
     Route: 064
     Dates: start: 20010720, end: 20020409
  2. FOLIC ACID. [Concomitant]
     Active Substance: FOLIC ACID
     Indication: PROPHYLAXIS
     Dosage: UNK
     Route: 064
  3. SPECIAFOLDINE [Concomitant]
     Active Substance: FOLIC ACID
     Dosage: UNK
     Route: 064
  4. CARBAMAZEPINE. [Suspect]
     Active Substance: CARBAMAZEPINE
     Indication: EPILEPSY
     Dosage: 800 MILLIGRAM, QD
     Route: 064
     Dates: start: 20010720, end: 20020409

REACTIONS (18)
  - Psychomotor skills impaired [Unknown]
  - Gastrooesophageal reflux disease [Unknown]
  - Intellectual disability [Unknown]
  - Heterophoria [Unknown]
  - Strabismus [Unknown]
  - Congenital hand malformation [Unknown]
  - Foetal exposure during pregnancy [Recovered/Resolved]
  - Laryngeal disorder [Unknown]
  - Learning disorder [Unknown]
  - Inguinal hernia [Unknown]
  - Astigmatism [Unknown]
  - Torticollis [Unknown]
  - Cognitive disorder [Unknown]
  - Dysmorphism [Unknown]
  - Cryptorchism [Unknown]
  - Otitis media [Unknown]
  - Hypotonia [Unknown]
  - Language disorder [Unknown]
